FAERS Safety Report 5191198-9 (Version None)
Quarter: 2006Q4

REPORT INFORMATION
  Report Type: 
  Country: None (occurrence: None)
  Receive Date: 20061220
  Receipt Date: 20061220
  Transmission Date: 20070319
  Serious: Yes (Hospitalization)
  Sender: FDA-Public Use
  Company Number: None

PATIENT
  Age: 66 Year
  Sex: Male
  Weight: 92.3 kg

DRUGS (14)
  1. ASPIRIN [Suspect]
     Indication: CORONARY ARTERY DISEASE
     Dosage: 81MG DAILY CHRONIC
  2. ASPIRIN [Suspect]
     Indication: PERIPHERAL VASCULAR DISORDER
     Dosage: 81MG DAILY CHRONIC
  3. PLAVIX [Suspect]
     Indication: CORONARY ARTERY DISEASE
     Dosage: 75 MG DAILY  CHRONIC
  4. PLAVIX [Suspect]
     Indication: PERIPHERAL VASCULAR DISORDER
     Dosage: 75 MG DAILY  CHRONIC
  5. BIDIL [Concomitant]
  6. COREG [Concomitant]
  7. LASIX [Concomitant]
  8. NORVASC [Concomitant]
  9. ASPIRIN [Concomitant]
  10. LIPITOR [Concomitant]
  11. PLAVIX [Concomitant]
  12. PEPCID [Concomitant]
  13. HUMULIN R [Concomitant]
  14. LOVENOX [Concomitant]

REACTIONS (5)
  - CARDIAC FAILURE CONGESTIVE [None]
  - DIABETIC FOOT [None]
  - OCCULT BLOOD POSITIVE [None]
  - POST PROCEDURAL HAEMORRHAGE [None]
  - TOE AMPUTATION [None]
